FAERS Safety Report 19314040 (Version 1)
Quarter: 2021Q2

REPORT INFORMATION
  Report Type: Spontaneous
  Country: CH (occurrence: CH)
  Receive Date: 20210527
  Receipt Date: 20210527
  Transmission Date: 20210717
  Serious: Yes (Hospitalization)
  Sender: FDA-Public Use
  Company Number: CH-CHEPLA-C20212565

PATIENT
  Age: 76 Year
  Sex: Male
  Weight: 79.5 kg

DRUGS (9)
  1. COMIRNATY [Suspect]
     Active Substance: TOZINAMERAN
     Dosage: SECOND DOSE
     Dates: start: 20210424, end: 20210424
  2. COSAAR FORTE [Concomitant]
     Active Substance: LOSARTAN POTASSIUM
  3. CARBOPLATIN TEVA [Suspect]
     Active Substance: CARBOPLATIN
     Dates: start: 20210329, end: 20210329
  4. ZYLORIC [Suspect]
     Active Substance: ALLOPURINOL
  5. ETOPOPHOS [Suspect]
     Active Substance: ETOPOSIDE PHOSPHATE
     Dates: start: 20210329, end: 20210331
  6. CONCOR [Concomitant]
     Active Substance: BISOPROLOL FUMARATE
  7. TECENTRIQ [Suspect]
     Active Substance: ATEZOLIZUMAB
  8. COMIRNATY [Suspect]
     Active Substance: TOZINAMERAN
     Dosage: FIRST DOSE
     Dates: start: 20210323, end: 20210323
  9. LERCANIDIPIN SANDOZ [Concomitant]
     Active Substance: LERCANIDIPINE HYDROCHLORIDE

REACTIONS (3)
  - Myositis [Recovering/Resolving]
  - Troponin increased [Recovering/Resolving]
  - Cell death [Recovering/Resolving]

NARRATIVE: CASE EVENT DATE: 20210504
